FAERS Safety Report 10219913 (Version 1)
Quarter: 2014Q2

REPORT INFORMATION
  Report Type: Spontaneous
  Country: US (occurrence: US)
  Receive Date: 20140605
  Receipt Date: 20140605
  Transmission Date: 20141212
  Serious: Yes (Other)
  Sender: FDA-Public Use
  Company Number: US-BAXTER-2014BAX028032

PATIENT
  Age: 3 Year
  Sex: Male

DRUGS (14)
  1. CYCLOPHOSPHAMIDE FOR INJECTION, USP [Suspect]
     Indication: BRAIN CANCER METASTATIC
     Dosage: DAYS 1 AND 2
     Route: 065
  2. CARBOPLATIN [Suspect]
     Indication: BRAIN CANCER METASTATIC
     Route: 065
  3. ETOPOSIDE [Suspect]
     Indication: BRAIN CANCER METASTATIC
     Route: 065
  4. VINCRISTINE [Suspect]
     Indication: BRAIN CANCER METASTATIC
     Route: 065
  5. CISPLATIN [Suspect]
     Indication: BRAIN CANCER METASTATIC
     Route: 065
  6. VINBLASTINE [Suspect]
     Indication: BRAIN CANCER METASTATIC
     Dosage: DAYS 1 AND 7
     Route: 065
  7. CETUXIMAB [Suspect]
     Indication: BRAIN CANCER METASTATIC
     Dosage: DAYS 7, 14 AND 21
     Route: 065
  8. GABAPENTIN [Concomitant]
     Indication: NEURALGIA
     Route: 065
  9. MEGESTROL [Concomitant]
     Indication: DECREASED APPETITE
     Route: 065
  10. PENTAMIDINE [Concomitant]
     Indication: ANTIFUNGAL PROPHYLAXIS
     Route: 065
  11. ONDANSETRON [Concomitant]
     Indication: NAUSEA
     Route: 065
  12. LORAZEPAM [Concomitant]
     Indication: NAUSEA
     Route: 065
  13. DOCUSATE [Concomitant]
     Indication: CONSTIPATION
     Route: 065
  14. POLYETHYLENE GLYCOL [Concomitant]
     Indication: CONSTIPATION
     Route: 065

REACTIONS (2)
  - Tetany [Recovered/Resolved]
  - Hypomagnesaemia [Recovered/Resolved]
